FAERS Safety Report 25121507 (Version 4)
Quarter: 2025Q3

REPORT INFORMATION
  Report Type: Report from Study
  Country: EU (occurrence: EU)
  Receive Date: 20250326
  Receipt Date: 20250826
  Transmission Date: 20251021
  Serious: Yes (Hospitalization, Other)
  Sender: TAKEDA
  Company Number: EU-TAKEDA-2025TUS004372

PATIENT
  Age: 1 Year
  Sex: Female

DRUGS (4)
  1. TEDUGLUTIDE [Suspect]
     Active Substance: TEDUGLUTIDE
     Indication: Short-bowel syndrome
     Dosage: 0.18 MILLILITER, QD
     Dates: start: 20241011
  2. TEDUGLUTIDE [Suspect]
     Active Substance: TEDUGLUTIDE
     Dosage: 0.18 MILLILITER, QD
     Dates: start: 20241024
  3. TEDUGLUTIDE [Suspect]
     Active Substance: TEDUGLUTIDE
     Dosage: 0.18 MILLILITER, QD
     Dates: start: 20241228
  4. TEDUGLUTIDE [Suspect]
     Active Substance: TEDUGLUTIDE
     Dosage: 0.2 MILLILITER, QD

REACTIONS (5)
  - Herpes virus infection [Recovered/Resolved]
  - Viral infection [Recovered/Resolved]
  - Catheter site thrombosis [Recovered/Resolved]
  - Febrile infection [Recovered/Resolved]
  - Peripheral swelling [Unknown]

NARRATIVE: CASE EVENT DATE: 20241231
